FAERS Safety Report 11285051 (Version 1)
Quarter: 2015Q3

REPORT INFORMATION
  Report Type: Spontaneous
  Country: CH (occurrence: CH)
  Receive Date: 20150720
  Receipt Date: 20150720
  Transmission Date: 20151125
  Serious: Yes (Life-Threatening, Hospitalization, Other)
  Sender: FDA-Public Use
  Company Number: CH-TEVA-577258ISR

PATIENT
  Age: 13 Year
  Sex: Female
  Weight: 44 kg

DRUGS (12)
  1. PROPOFOL. [Suspect]
     Active Substance: PROPOFOL
     Indication: STUPOR
     Route: 065
     Dates: start: 2015, end: 2015
  2. ESMERON [Suspect]
     Active Substance: ROCURONIUM BROMIDE
     Indication: HYPOTONIA
     Route: 042
     Dates: start: 2015, end: 2015
  3. DORMICUM [Suspect]
     Active Substance: MIDAZOLAM\MIDAZOLAM HYDROCHLORIDE
     Indication: STUPOR
     Route: 065
     Dates: start: 2015, end: 2015
  4. SOLU-MEDROL [Concomitant]
     Active Substance: METHYLPREDNISOLONE SODIUM SUCCINATE
     Indication: FLUSHING
     Route: 065
     Dates: start: 2015, end: 2015
  5. REMIFENTANIL [Suspect]
     Active Substance: REMIFENTANIL
     Indication: STUPOR
     Route: 065
     Dates: start: 2015, end: 2015
  6. SEVOFLURANE. [Suspect]
     Active Substance: SEVOFLURANE
     Indication: STUPOR
     Route: 065
     Dates: start: 2015, end: 2015
  7. ATROPIN [Suspect]
     Active Substance: ATROPINE
     Indication: EXTRASYSTOLES
     Dosage: WAS GIVEN AFTER OCCURRENCE OF BIGEMINY - BIGEMINY IS NOT LABELLED
     Route: 065
     Dates: start: 2015, end: 2015
  8. TAVEGYL [Concomitant]
     Active Substance: CLEMASTINE FUMARATE
     Indication: FLUSHING
     Route: 065
     Dates: start: 2015, end: 2015
  9. TAVEGYL [Concomitant]
     Active Substance: CLEMASTINE FUMARATE
     Indication: FLUSHING
  10. FENTANYL. [Suspect]
     Active Substance: FENTANYL
     Indication: ANAESTHESIA PROCEDURE
     Route: 042
     Dates: start: 2015, end: 2015
  11. ESMOLOL [Suspect]
     Active Substance: ESMOLOL HYDROCHLORIDE
     Indication: RESUSCITATION
     Route: 065
     Dates: start: 2015, end: 2015
  12. PROPOFOL. [Suspect]
     Active Substance: PROPOFOL
     Indication: ANAESTHESIA PROCEDURE
     Route: 042
     Dates: start: 2015, end: 2015

REACTIONS (10)
  - Extrasystoles [Recovered/Resolved]
  - Hypertension [Unknown]
  - Electrocardiogram QT prolonged [Unknown]
  - Pulmonary haemorrhage [Unknown]
  - Rhabdomyolysis [Recovering/Resolving]
  - Cardiac failure [Recovering/Resolving]
  - Tachycardia [Recovered/Resolved]
  - Pneumonia aspiration [Unknown]
  - Left ventricular failure [None]
  - Flushing [None]

NARRATIVE: CASE EVENT DATE: 2015
